FAERS Safety Report 8793903 (Version 3)
Quarter: 2012Q4

REPORT INFORMATION
  Report Type: Report from Study
  Country: JP (occurrence: JP)
  Receive Date: 20120918
  Receipt Date: 20121229
  Transmission Date: 20130627
  Serious: Yes (Death, Life-Threatening, Hospitalization, Other)
  Sender: FDA-Public Use
  Company Number: JP-MERCK-1208JPN007336

PATIENT
  Age: 34 Year
  Sex: Male
  Weight: 52 kg

DRUGS (15)
  1. TEMODAL [Suspect]
     Indication: GLIOBLASTOMA MULTIFORME
     Dosage: 150 mg/m2, qd
     Route: 048
     Dates: start: 20061114, end: 20061118
  2. TEMODAL [Suspect]
     Dosage: 200 mg/m2, qd
     Route: 048
     Dates: start: 20070115, end: 20070119
  3. TEMODAL [Suspect]
     Dosage: 150 mg/m2, qd
     Route: 048
     Dates: start: 20070306, end: 20070310
  4. EXCEGRAN [Suspect]
     Dosage: Daily dose unknown, Formulation: POR
     Route: 048
     Dates: end: 20070413
  5. RINDERON [Suspect]
     Dosage: Daily dosage unknown, Formulation: POR
     Route: 048
     Dates: end: 20070521
  6. BAKTAR [Concomitant]
     Indication: ANTIFUNGAL PROPHYLAXIS
     Dosage: Daily dosage unknown, Formulation: POR
     Route: 048
     Dates: start: 20070404, end: 20070417
  7. ALEVIATIN [Concomitant]
     Dosage: Daily dosage unknown, Formulation: POR
     Route: 048
     Dates: end: 20070521
  8. CERCINE [Concomitant]
     Indication: PROPHYLAXIS
     Dosage: Daily dosage unknown
     Route: 048
  9. PARIET [Concomitant]
     Dosage: Daily dosage unknown
     Route: 048
     Dates: end: 20070407
  10. NASEA [Concomitant]
     Indication: PROPHYLAXIS
     Dosage: Daily dosage unknown
     Route: 048
     Dates: start: 20061114, end: 20070116
  11. HORIZON [Concomitant]
     Dosage: Daily dosage unknown, Formulation: POR
     Route: 048
     Dates: start: 20070205, end: 20070407
  12. GASTER [Concomitant]
     Dosage: Daily dosage unknown
     Route: 048
     Dates: start: 20070414, end: 20070521
  13. GLYPOSE [Concomitant]
     Dosage: Daily dosage unknown
     Route: 041
     Dates: start: 20070313, end: 20070407
  14. MANNITOL [Concomitant]
     Dosage: Daily dosage unknown
     Route: 041
     Dates: start: 20070407, end: 20070523
  15. PNTWIN [Concomitant]
     Dosage: Daily dosage unknown
     Route: 041
     Dates: start: 20070410, end: 20070523

REACTIONS (11)
  - Disease progression [Fatal]
  - Hepatic function abnormal [Not Recovered/Not Resolved]
  - Inflammation [Not Recovered/Not Resolved]
  - Platelet count decreased [Not Recovered/Not Resolved]
  - Hyperglycaemia [Not Recovered/Not Resolved]
  - Urine analysis abnormal [Not Recovered/Not Resolved]
  - Constipation [Recovered/Resolved]
  - Disseminated intravascular coagulation [Not Recovered/Not Resolved]
  - Lymphocyte count decreased [Not Recovered/Not Resolved]
  - Infection [Not Recovered/Not Resolved]
  - Protein total decreased [Not Recovered/Not Resolved]
